FAERS Safety Report 20278101 (Version 1)
Quarter: 2022Q1

REPORT INFORMATION
  Report Type: Report from Study
  Country: EG (occurrence: EG)
  Receive Date: 20220103
  Receipt Date: 20220103
  Transmission Date: 20220423
  Serious: Yes (Other)
  Sender: FDA-Public Use
  Company Number: EG-NOVARTISPH-NVSC2021EG292137

PATIENT
  Age: 64 Year
  Sex: Male

DRUGS (17)
  1. ENTRESTO [Suspect]
     Active Substance: SACUBITRIL\VALSARTAN
     Indication: Cardiac failure
     Dosage: 50 MG, QD
     Route: 048
     Dates: start: 201903
  2. BISOPROLOL FUMARATE [Concomitant]
     Active Substance: BISOPROLOL FUMARATE
     Indication: Hypertension
     Dosage: 2.5 MG
     Route: 048
  3. WARFARIN SODIUM [Concomitant]
     Active Substance: WARFARIN SODIUM
     Indication: Anticoagulant therapy
     Dosage: 3 MG (DEPENDING ON INR VALUE), UNKNOWN
     Route: 065
  4. WARFARIN SODIUM [Concomitant]
     Active Substance: WARFARIN SODIUM
     Dosage: 5 MG (DEPENDING ON INR VALUE), UNKNOWN
     Route: 065
  5. EXAMIDE [Concomitant]
     Indication: Hypertension
     Dosage: 20 MG
     Route: 048
  6. SPECTONE [Concomitant]
     Indication: Hypertension
     Dosage: 25 MG
     Route: 048
  7. INSULIN ASPART [Concomitant]
     Active Substance: INSULIN ASPART
     Indication: Diabetes mellitus
     Dosage: UNK
     Route: 058
  8. BRONCHOFEN [Concomitant]
     Indication: Cough
     Dosage: UNK (2 TO 3 TIMES DAILY)
     Route: 048
  9. BRONCHOFEN [Concomitant]
     Indication: Chest pain
  10. HERBALS [Concomitant]
     Active Substance: HERBALS
     Indication: Cough
     Dosage: UNK (2 TO 3 TIMES DAILY)
     Route: 048
  11. HERBALS [Concomitant]
     Active Substance: HERBALS
     Indication: Chest pain
  12. TOPLEXIL [Concomitant]
     Indication: Cough
     Dosage: UNK, TID (2 TO 3 TIMES DAILY)
     Route: 048
  13. TOPLEXIL [Concomitant]
     Indication: Chest pain
  14. DIMETHICONE [Concomitant]
     Active Substance: DIMETHICONE
     Indication: Gastric disorder
     Dosage: UNK
     Route: 048
  15. EUCARBON [Concomitant]
     Indication: Gastric disorder
     Dosage: UNK
     Route: 048
  16. SYMBICORT [Concomitant]
     Active Substance: BUDESONIDE\FORMOTEROL FUMARATE DIHYDRATE
     Indication: Cough
     Dosage: UNK
     Route: 055
     Dates: start: 202111
  17. SYMBICORT [Concomitant]
     Active Substance: BUDESONIDE\FORMOTEROL FUMARATE DIHYDRATE
     Indication: Chest pain

REACTIONS (8)
  - Orthopnoea [Recovered/Resolved]
  - Fatigue [Recovered/Resolved]
  - Intentional dose omission [Recovered/Resolved]
  - Fungal infection [Not Recovered/Not Resolved]
  - Oedema peripheral [Not Recovered/Not Resolved]
  - Inflammation [Not Recovered/Not Resolved]
  - Prescribed underdose [Not Recovered/Not Resolved]
  - Inappropriate schedule of product administration [Not Recovered/Not Resolved]

NARRATIVE: CASE EVENT DATE: 20190301
